FAERS Safety Report 6013965-1 (Version None)
Quarter: 2008Q4

REPORT INFORMATION
  Report Type: 
  Country: None (occurrence: None)
  Receive Date: 20081216
  Receipt Date: 20080506
  Transmission Date: 20090506
  Serious: Yes (Other)
  Sender: FDA-Public Use
  Company Number: US-WYE-H03944708

PATIENT
  Age: 50 Year
  Sex: Female
  Weight: 77.18 kg

DRUGS (6)
  1. EFFEXOR XR [Suspect]
     Indication: DEPRESSION
     Dosage: 150 MG 1X PER 1 DAY, ORAL : 300 MG 1X PER 1 DAY, ORAL
     Route: 048
     Dates: start: 19980101, end: 20080401
  2. EFFEXOR XR [Suspect]
     Indication: DEPRESSION
     Dosage: 150 MG 1X PER 1 DAY, ORAL : 300 MG 1X PER 1 DAY, ORAL
     Route: 048
     Dates: start: 20080401, end: 20080501
  3. TRAZODONE HCL [Concomitant]
  4. DIOVAN [Concomitant]
  5. ACTOS [Concomitant]
  6. TOPAMAX [Concomitant]

REACTIONS (7)
  - CONVULSION [None]
  - DIARRHOEA [None]
  - DIZZINESS [None]
  - DRUG WITHDRAWAL SYNDROME [None]
  - INTENTIONAL DRUG MISUSE [None]
  - NAUSEA [None]
  - PARAESTHESIA [None]
